FAERS Safety Report 11186007 (Version 1)
Quarter: 2015Q2

REPORT INFORMATION
  Report Type: Spontaneous
  Country: US (occurrence: US)
  Receive Date: 20150612
  Receipt Date: 20150612
  Transmission Date: 20150821
  Serious: No
  Sender: FDA-Public Use
  Company Number: US-ASTRAZENECA-2015SE54588

PATIENT
  Age: 73 Year
  Sex: Female
  Weight: 72.6 kg

DRUGS (4)
  1. FISH OIL [Concomitant]
     Active Substance: FISH OIL
     Indication: VITAMIN SUPPLEMENTATION
     Route: 048
     Dates: start: 201505
  2. FISH OIL [Concomitant]
     Active Substance: FISH OIL
     Indication: SKIN DISORDER
     Route: 048
     Dates: start: 201505
  3. TOPROL XL [Suspect]
     Active Substance: METOPROLOL SUCCINATE
     Indication: HYPERTENSION
     Route: 048
  4. FOLIC ACID. [Concomitant]
     Active Substance: FOLIC ACID
     Indication: VITAMIN B12 DEFICIENCY
     Route: 048
     Dates: start: 2010

REACTIONS (3)
  - Coeliac disease [Unknown]
  - Rash generalised [Not Recovered/Not Resolved]
  - Adverse drug reaction [Not Recovered/Not Resolved]

NARRATIVE: CASE EVENT DATE: 201412
